FAERS Safety Report 9988931 (Version 2)
Quarter: 2014Q1

REPORT INFORMATION
  Report Type: Report from Study
  Country: US (occurrence: US)
  Receive Date: 20140310
  Receipt Date: 20140310
  Transmission Date: 20141002
  Serious: No
  Sender: FDA-Public Use
  Company Number: US-ABBVIE-13P-163-1109637-00

PATIENT
  Age: 55 Year
  Sex: Female

DRUGS (8)
  1. HUMIRA [Suspect]
     Indication: RHEUMATOID ARTHRITIS
     Dates: start: 20130603
  2. METHOTREXATE [Concomitant]
     Indication: PRODUCT USED FOR UNKNOWN INDICATION
     Dosage: WEEKLY  ON SATURDAYS
  3. HYDROCHLOROTHIAZIDE [Concomitant]
     Indication: FLUID RETENTION
  4. HYDROCHLOROTHIAZIDE [Concomitant]
     Indication: HYPERTENSION
  5. ZETIA [Concomitant]
     Indication: HYPERCHOLESTEROLAEMIA
  6. CYMBALTA [Concomitant]
     Indication: FIBROMYALGIA
  7. AMBIEN [Concomitant]
     Indication: INSOMNIA
  8. ZANFLEX [Concomitant]
     Indication: HYPOTONIA
     Dosage: AT NIGHT

REACTIONS (6)
  - Fatigue [Recovered/Resolved]
  - Injection site pain [Recovered/Resolved]
  - Injection site pain [Recovered/Resolved]
  - Drug ineffective [Not Recovered/Not Resolved]
  - Blood pressure increased [Recovering/Resolving]
  - Joint swelling [Recovering/Resolving]
